FAERS Safety Report 8069294-8 (Version None)
Quarter: 2012Q1

REPORT INFORMATION
  Report Type: 
  Country: None (occurrence: None)
  Receive Date: 20120125
  Receipt Date: 20120123
  Transmission Date: 20120608
  Serious: Yes (Hospitalization, Other)
  Sender: FDA-Public Use
  Company Number: US-JNJFOC-20110408548

PATIENT
  Sex: Male

DRUGS (2)
  1. BACTRIM [Suspect]
     Indication: OTITIS MEDIA
     Route: 065
  2. LEVAQUIN [Suspect]
     Indication: EAR INFECTION
     Route: 048

REACTIONS (5)
  - STEVENS-JOHNSON SYNDROME [None]
  - RENAL FAILURE ACUTE [None]
  - DEPRESSION [None]
  - TOXIC EPIDERMAL NECROLYSIS [None]
  - BLINDNESS [None]
